FAERS Safety Report 6888582-1 (Version None)
Quarter: 2010Q3

REPORT INFORMATION
  Report Type: 
  Country: None (occurrence: None)
  Receive Date: 20100730
  Receipt Date: 20071010
  Transmission Date: 20110219
  Serious: No
  Sender: FDA-Public Use
  Company Number: US-PFIZER INC-2007085196

PATIENT
  Sex: Female
  Weight: 75.909 kg

DRUGS (6)
  1. LIPITOR [Suspect]
     Indication: BLOOD CHOLESTEROL INCREASED
     Dates: start: 20071008, end: 20071009
  2. CENTRUM [Concomitant]
  3. LIPOSYN [Concomitant]
  4. UBIDECARENONE [Concomitant]
  5. ASCORBIC ACID [Concomitant]
  6. ALL OTHER THERAPEUTIC PRODUCTS [Concomitant]
     Indication: ARTHROPATHY

REACTIONS (5)
  - EYE PAIN [None]
  - HEADACHE [None]
  - MALAISE [None]
  - MYALGIA [None]
  - SLEEP DISORDER [None]
